FAERS Safety Report 5047262-8 (Version None)
Quarter: 2006Q2

REPORT INFORMATION
  Report Type: 
  Country: None (occurrence: None)
  Receive Date: 20060601
  Receipt Date: 20060219
  Transmission Date: 20061013
  Serious: No
  Sender: FDA-Public Use
  Company Number: 2006PV008940

PATIENT
  Age: 51 Year
  Sex: Female

DRUGS (6)
  1. BYETTA [Suspect]
     Indication: DIABETES MELLITUS NON-INSULIN-DEPENDENT
     Dosage: 5 MCG;BID;SC
     Route: 058
     Dates: start: 20060120, end: 20060209
  2. AUGMENTIN [Suspect]
     Indication: FUNGAL INFECTION
     Dosage: 875 MG;PO
     Route: 048
     Dates: start: 20060101, end: 20060210
  3. GLUCOPHAGE [Concomitant]
  4. AVANDIA [Concomitant]
  5. GLYNASE [Concomitant]
  6. KETOCONAZOLE [Concomitant]

REACTIONS (4)
  - DECREASED APPETITE [None]
  - INJECTION SITE RASH [None]
  - INJECTION SITE SWELLING [None]
  - WEIGHT DECREASED [None]
